FAERS Safety Report 8750657 (Version 2)
Quarter: 2012Q4

REPORT INFORMATION
  Report Type: 
  Country: NL (occurrence: None)
  Receive Date: 20120809
  Receipt Date: 20120828
  Transmission Date: 20130627
  Serious: Yes (Disabling)
  Sender: FDA-Public Use
  Company Number: 2012AP002321

PATIENT
  Age: 64 Year
  Sex: Female

DRUGS (1)
  1. TERBINAFINE HYDROCHLORIDE [Suspect]
     Dosage: 25O MG, QD, PO
     Route: 048

REACTIONS (2)
  - Hearing impaired [None]
  - Tinnitus [None]
